FAERS Safety Report 8301053 (Version 2)
Quarter: 2016Q1

REPORT INFORMATION
  Report Type: Spontaneous
  Country: US (occurrence: US)
  Receive Date: 20111219
  Receipt Date: 20160330
  Transmission Date: 20160526
  Serious: No
  Sender: FDA-Public Use
  Company Number: US-ASTRAZENECA-2010SE57678

PATIENT
  Sex: Female

DRUGS (2)
  1. CRESTOR [Suspect]
     Active Substance: ROSUVASTATIN CALCIUM
     Indication: HYPERTRIGLYCERIDAEMIA
     Route: 048
     Dates: start: 20101112
  2. BRILINTA [Suspect]
     Active Substance: TICAGRELOR
     Indication: ACUTE CORONARY SYNDROME
     Route: 048

REACTIONS (3)
  - Myalgia [Unknown]
  - Headache [Recovered/Resolved]
  - Pain in jaw [Unknown]

NARRATIVE: CASE EVENT DATE: 20101119
